FAERS Safety Report 23669043 (Version 1)
Quarter: 2024Q1

REPORT INFORMATION
  Report Type: Spontaneous
  Country: US (occurrence: US)
  Receive Date: 20240325
  Receipt Date: 20240325
  Transmission Date: 20240409
  Serious: Yes (Hospitalization, Other)
  Sender: FDA-Public Use
  Company Number: US-SA-SAC20240321001211

PATIENT
  Age: 42 Year
  Sex: Female
  Weight: 98.8 kg

DRUGS (24)
  1. DUPIXENT [Suspect]
     Active Substance: DUPILUMAB
     Dosage: 300 MG, QOW
     Route: 058
  2. BERINERT [Concomitant]
     Active Substance: HUMAN C1-ESTERASE INHIBITOR
  3. EPINEPHRINE [Concomitant]
     Active Substance: EPINEPHRINE
  4. XARELTO [Concomitant]
     Active Substance: RIVAROXABAN
  5. VITAMIN D3 [Concomitant]
     Active Substance: CHOLECALCIFEROL
  6. BACLOFEN [Concomitant]
     Active Substance: BACLOFEN
  7. CARVEDILOL [Concomitant]
     Active Substance: CARVEDILOL
  8. RESTASIS [Concomitant]
     Active Substance: CYCLOSPORINE
  9. LEVETIRACETAM [Concomitant]
     Active Substance: LEVETIRACETAM
  10. CEVIMELINE HYDROCHLORIDE [Concomitant]
     Active Substance: CEVIMELINE HYDROCHLORIDE
  11. METFORMIN HYDROCHLORIDE [Concomitant]
     Active Substance: METFORMIN HYDROCHLORIDE
  12. PLAQUENIL [Concomitant]
     Active Substance: HYDROXYCHLOROQUINE SULFATE
  13. VALTREX [Concomitant]
     Active Substance: VALACYCLOVIR HYDROCHLORIDE
  14. AMBIEN [Concomitant]
     Active Substance: ZOLPIDEM TARTRATE
  15. POTASSIUM CHLORIDE [Concomitant]
     Active Substance: POTASSIUM CHLORIDE
  16. CYTOMEL [Concomitant]
     Active Substance: LIOTHYRONINE SODIUM
  17. LEVOTHYROXINE SODIUM [Concomitant]
     Active Substance: LEVOTHYROXINE SODIUM
  18. MESTINON [Concomitant]
     Active Substance: PYRIDOSTIGMINE BROMIDE
  19. CROMOLYN SODIUM [Concomitant]
     Active Substance: CROMOLYN SODIUM
     Route: 048
  20. MUPIROCIN [Concomitant]
     Active Substance: MUPIROCIN
  21. ALBUTEROL SULFATE [Concomitant]
     Active Substance: ALBUTEROL SULFATE
  22. BUDESONIDE [Concomitant]
     Active Substance: BUDESONIDE
  23. EMGALITY [Concomitant]
     Active Substance: GALCANEZUMAB-GNLM
  24. OCTAGAM IMMUNE GLOBULIN (HUMAN) [Concomitant]
     Active Substance: HUMAN IMMUNOGLOBULIN G

REACTIONS (4)
  - Spinal operation [Unknown]
  - Peripheral swelling [Unknown]
  - Swelling face [Unknown]
  - Abdominal discomfort [Unknown]
